FAERS Safety Report 21182683 (Version 3)
Quarter: 2023Q1

REPORT INFORMATION
  Report Type: Spontaneous
  Country: US (occurrence: US)
  Receive Date: 20220808
  Receipt Date: 20230328
  Transmission Date: 20230418
  Serious: Yes (Other)
  Sender: FDA-Public Use
  Company Number: US-SA-SAC20220801000778

PATIENT
  Age: 48 Year
  Sex: Female

DRUGS (3)
  1. AUBAGIO [Suspect]
     Active Substance: TERIFLUNOMIDE
     Indication: Multiple sclerosis
     Dosage: 14 MG, QD
     Route: 048
  2. AUBAGIO [Suspect]
     Active Substance: TERIFLUNOMIDE
     Indication: Thyroid disorder
  3. AUBAGIO [Suspect]
     Active Substance: TERIFLUNOMIDE
     Indication: Type IIa hyperlipidaemia

REACTIONS (7)
  - Multiple sclerosis [Not Recovered/Not Resolved]
  - Cranial nerve disorder [Unknown]
  - Hepatic enzyme increased [Unknown]
  - Visual impairment [Unknown]
  - Optic nerve disorder [Unknown]
  - Drug effect less than expected [Unknown]
  - Product use in unapproved indication [Unknown]
